FAERS Safety Report 8161429-1 (Version None)
Quarter: 2012Q1

REPORT INFORMATION
  Report Type: 
  Country: None (occurrence: None)
  Receive Date: 20120103
  Receipt Date: 20111024
  Transmission Date: 20120608
  Serious: No
  Sender: FDA-Public Use
  Company Number: AE-2011-001913

PATIENT
  Age: 30 Year
  Sex: Female
  Weight: 79.8331 kg

DRUGS (6)
  1. PEGASYS [Concomitant]
  2. RIBAVIRIN [Concomitant]
  3. IBUPROFEN [Concomitant]
  4. INCIVEK [Suspect]
     Dosage: 2250 MG (750 MG, 3 IN 1 D), ORAL
     Route: 048
     Dates: start: 20110928
  5. CLONIDINE [Concomitant]
  6. PAXIL [Concomitant]

REACTIONS (5)
  - PALPITATIONS [None]
  - ARTHROPOD STING [None]
  - PAIN [None]
  - SWELLING [None]
  - FATIGUE [None]
